FAERS Safety Report 25883390 (Version 2)
Quarter: 2025Q4

REPORT INFORMATION
  Report Type: Spontaneous
  Country: EU (occurrence: EU)
  Receive Date: 20251006
  Receipt Date: 20251023
  Transmission Date: 20260118
  Serious: Yes (Other)
  Sender: BRISTOL-MYERS SQUIBB COMPANY
  Company Number: EU-BRISTOL-MYERS SQUIBB COMPANY-2025-133571

PATIENT
  Sex: Female

DRUGS (10)
  1. PACLITAXEL [Suspect]
     Active Substance: PACLITAXEL
     Indication: Chemotherapy
     Dosage: 100 UNK (MG/M? BODY SURFACE ARE)
     Dates: start: 202105, end: 202109
  2. ALPELISIB [Suspect]
     Active Substance: ALPELISIB
     Indication: Breast cancer metastatic
     Dosage: UNK
  3. ALPELISIB [Suspect]
     Active Substance: ALPELISIB
     Indication: PIK3CA-activated mutation
     Dosage: 250 MG, BID
     Dates: start: 2020, end: 202012
  4. FULVESTRANT [Suspect]
     Active Substance: FULVESTRANT
     Indication: Breast cancer metastatic
     Dosage: UNK
     Dates: start: 202009, end: 202012
  5. FULVESTRANT [Suspect]
     Active Substance: FULVESTRANT
     Indication: PIK3CA-activated mutation
  6. EPIRUBICIN [Suspect]
     Active Substance: EPIRUBICIN
     Indication: Chemotherapy
     Dosage: 30 UNK (MG/M? BODY SURFACE ARE)
     Dates: start: 202102, end: 202105
  7. CAPECITABINE [Suspect]
     Active Substance: CAPECITABINE
     Indication: Chemotherapy
     Dosage: 500 MG, BID (1ST CYCLE, 1-0-1 ON THE 1ST  CYCLE, THEN EVERY 28 DAYS)
     Dates: start: 2020, end: 2020
  8. ATEZOLIZUMAB [Suspect]
     Active Substance: ATEZOLIZUMAB
     Indication: Chemotherapy
     Dosage: 840 MG (EVERY 28 DAYS)
     Dates: start: 202105, end: 202109
  9. DENOSUMAB [Concomitant]
     Active Substance: DENOSUMAB
     Indication: Chemotherapy
     Dosage: 120 MG
     Dates: start: 202101, end: 2021
  10. VINORELBINE [Concomitant]
     Active Substance: VINORELBINE TARTRATE
     Indication: Chemotherapy
     Dosage: 25 MG ( MG/M? BODY SURFACE)
     Dates: start: 202101, end: 202102

REACTIONS (10)
  - Diabetes mellitus [Unknown]
  - Malignant neoplasm progression [Unknown]
  - Pneumonitis [Unknown]
  - Pleural effusion [Unknown]
  - General physical health deterioration [Unknown]
  - Hypoglycaemia [Unknown]
  - Gene mutation identification test positive [Unknown]
  - Fatigue [Unknown]
  - Decreased appetite [Unknown]
  - Fracture [Unknown]

NARRATIVE: CASE EVENT DATE: 20200101
